FAERS Safety Report 13403776 (Version 1)
Quarter: 2017Q2

REPORT INFORMATION
  Report Type: Spontaneous
  Country: US (occurrence: US)
  Receive Date: 20170405
  Receipt Date: 20170405
  Transmission Date: 20170830
  Serious: Yes (Disabling)
  Sender: FDA-Public Use
  Company Number: None

PATIENT
  Age: 45 Year
  Sex: Female
  Weight: 76.05 kg

DRUGS (8)
  1. ZYRTEC [Concomitant]
     Active Substance: CETIRIZINE HYDROCHLORIDE
  2. HEPARIN [Suspect]
     Active Substance: HEPARIN SODIUM
     Indication: ANTICOAGULANT THERAPY
     Route: 058
     Dates: start: 20170315, end: 20170317
  3. IRON PILLS [Concomitant]
     Active Substance: IRON
  4. XANAX [Concomitant]
     Active Substance: ALPRAZOLAM
  5. ABUTOROL [Concomitant]
  6. SEROQUEL [Concomitant]
     Active Substance: QUETIAPINE FUMARATE
  7. ZANTAC [Concomitant]
     Active Substance: RANITIDINE HYDROCHLORIDE
  8. QUAVAR [Concomitant]

REACTIONS (27)
  - Contusion [None]
  - Dysphagia [None]
  - Gingival pain [None]
  - Feeling abnormal [None]
  - Peripheral coldness [None]
  - Swelling [None]
  - Pharyngeal oedema [None]
  - Vision blurred [None]
  - Hypoaesthesia [None]
  - Neck pain [None]
  - Alopecia [None]
  - Gingival bleeding [None]
  - Cough [None]
  - Back pain [None]
  - Joint range of motion decreased [None]
  - Fall [None]
  - Lacrimation increased [None]
  - Rhinorrhoea [None]
  - Hypersomnia [None]
  - Feeling hot [None]
  - Blood pressure increased [None]
  - Disturbance in attention [None]
  - Pruritus [None]
  - Pain in extremity [None]
  - Dysstasia [None]
  - Hair texture abnormal [None]
  - Neuropathy peripheral [None]

NARRATIVE: CASE EVENT DATE: 20170315
